FAERS Safety Report 14666467 (Version 2)
Quarter: 2018Q4

REPORT INFORMATION
  Report Type: Spontaneous
  Country: TW (occurrence: TW)
  Receive Date: 20180321
  Receipt Date: 20181115
  Transmission Date: 20190204
  Serious: Yes (Other)
  Sender: FDA-Public Use
  Company Number: TW-AMGEN-TWNSP2018038955

PATIENT
  Age: 28 Year
  Sex: Male

DRUGS (3)
  1. MYCOMB [Concomitant]
     Dosage: UNK
  2. ENBREL [Suspect]
     Active Substance: ETANERCEPT
     Indication: ANKYLOSING SPONDYLITIS
     Dosage: 25 MG, Q2WK
     Route: 058
     Dates: start: 20170208
  3. SALAZINE [Concomitant]
     Active Substance: SULFASALAZINE
     Dosage: 500 MG, BID

REACTIONS (2)
  - Uveitis [Not Recovered/Not Resolved]
  - Inappropriate schedule of product administration [Unknown]

NARRATIVE: CASE EVENT DATE: 20170208
